FAERS Safety Report 6336638-4 (Version None)
Quarter: 2009Q3

REPORT INFORMATION
  Report Type: 
  Country: None (occurrence: None)
  Receive Date: 20090831
  Receipt Date: 20090831
  Transmission Date: 20100115
  Serious: Yes (Other)
  Sender: FDA-Public Use
  Company Number: None

PATIENT
  Age: 48 Year
  Sex: Male
  Weight: 88.4514 kg

DRUGS (3)
  1. ANDRODERM [Suspect]
     Indication: BLOOD TESTOSTERONE DECREASED
     Dosage: 1 PATCH ONCE DAILY TRANSDERMAL
     Route: 062
     Dates: start: 20090806, end: 20090822
  2. ANDROGEL [Suspect]
     Indication: BLOOD TESTOSTERONE DECREASED
     Dosage: 4 PUMPS ONCE DAILY TOP
     Route: 061
     Dates: start: 20090823, end: 20090826
  3. ANDROGEL [Suspect]
     Indication: NONSPECIFIC REACTION
     Dosage: 4 PUMPS ONCE DAILY TOP
     Route: 061
     Dates: start: 20090823, end: 20090826

REACTIONS (5)
  - APPLICATION SITE ERYTHEMA [None]
  - APPLICATION SITE IRRITATION [None]
  - APPLICATION SITE RASH [None]
  - APPLICATION SITE SWELLING [None]
  - DISCOMFORT [None]
